FAERS Safety Report 24308231 (Version 1)
Quarter: 2024Q3

REPORT INFORMATION
  Report Type: Spontaneous
  Country: US (occurrence: None)
  Receive Date: 20240911
  Receipt Date: 20240911
  Transmission Date: 20241017
  Serious: Yes (Hospitalization)
  Sender: Public
  Company Number: None

PATIENT
  Sex: Female

DRUGS (10)
  1. KESIMPTA [Suspect]
     Active Substance: OFATUMUMAB
     Indication: Multiple sclerosis
     Route: 058
     Dates: start: 20231109
  2. ALPRAZOLAM [Concomitant]
     Active Substance: ALPRAZOLAM
  3. APRI [Concomitant]
     Active Substance: DESOGESTREL\ETHINYL ESTRADIOL
  4. EFFEXOR [Concomitant]
     Active Substance: VENLAFAXINE HYDROCHLORIDE
  5. HYDROCODONE POW BITARTRA [Concomitant]
  6. OXYCODONE [Concomitant]
     Active Substance: OXYCODONE
  7. PERPHENAZINE [Concomitant]
     Active Substance: PERPHENAZINE
  8. TOPAMAX [Concomitant]
     Active Substance: TOPIRAMATE
  9. TRAZODONE [Concomitant]
     Active Substance: TRAZODONE HYDROCHLORIDE
  10. VESUCARE [Concomitant]

REACTIONS (2)
  - Gallbladder operation [None]
  - Therapy change [None]
